FAERS Safety Report 9796664 (Version 3)
Quarter: 2014Q1

REPORT INFORMATION
  Report Type: Report from Study
  Country: AU (occurrence: AU)
  Receive Date: 20140103
  Receipt Date: 20140228
  Transmission Date: 20141002
  Serious: Yes (Hospitalization)
  Sender: FDA-Public Use
  Company Number: AU-TEVA-454080USA

PATIENT
  Age: 82 Year
  Sex: Female

DRUGS (16)
  1. BENDAMUSTINE HYDROCHLORIDE [Suspect]
     Indication: B-CELL LYMPHOMA
     Dosage: 3.75 MILLIGRAM DAILY;
     Route: 042
     Dates: start: 20130618
  2. BENDAMUSTINE HYDROCHLORIDE [Suspect]
     Dosage: 3.75 MILLIGRAM DAILY;
     Route: 042
     Dates: start: 20131114
  3. RITUXIMAB [Suspect]
     Indication: B-CELL LYMPHOMA
     Route: 042
     Dates: start: 20130618
  4. RITUXIMAB [Suspect]
     Route: 042
     Dates: start: 20131106
  5. AMLODIPINE [Concomitant]
     Indication: HYPERTENSION
     Dosage: 5 MILLIGRAM DAILY;
  6. KARVEA [Concomitant]
     Indication: HYPERTENSION
  7. METFORMIN [Concomitant]
     Indication: TYPE 2 DIABETES MELLITUS
  8. ACTONEL COMBI [Concomitant]
     Indication: OSTEOPOROSIS
  9. ROSUVASTATIN [Concomitant]
     Indication: BLOOD CHOLESTEROL INCREASED
     Route: 048
  10. GRANISETRON HYDROCHLORIDE [Concomitant]
     Indication: VOMITING
     Dates: start: 20130618
  11. PARACETAMOL [Concomitant]
     Indication: PREMEDICATION
     Dates: start: 20130618
  12. RABEPRAZOLE [Concomitant]
     Dosage: 40 MILLIGRAM DAILY;
     Route: 048
  13. OXYCODONE HYDROCHLORIDE [Concomitant]
     Dosage: 20 MILLIGRAM DAILY;
     Route: 048
  14. METOCLOPRAMIDE HYDROCHLORIDE [Concomitant]
     Dosage: PRN
  15. DOCUSATE SODIUM [Concomitant]
  16. SENNOSIDE [Concomitant]
     Route: 048

REACTIONS (2)
  - Dizziness [Not Recovered/Not Resolved]
  - Back pain [Recovering/Resolving]
